FAERS Safety Report 10461196 (Version 1)
Quarter: 2014Q3

REPORT INFORMATION
  Report Type: Spontaneous
  Country: US (occurrence: None)
  Receive Date: 20140917
  Receipt Date: 20140917
  Transmission Date: 20150326
  Serious: Yes (Disabling)
  Sender: FDA-Public Use
  Company Number: None

PATIENT
  Age: 65 Year
  Sex: Female

DRUGS (17)
  1. ELIDEL [Concomitant]
     Active Substance: PIMECROLIMUS
  2. LOW DOSE 81 MG ASPIRIN [Concomitant]
  3. VITAMIN D3 [Concomitant]
     Active Substance: CHOLECALCIFEROL
  4. VITAMIN E [Concomitant]
     Active Substance: .ALPHA.-TOCOPHEROL
  5. ZINC [Concomitant]
     Active Substance: ZINC\ZINC CHLORIDE
  6. CALCIUM W/VIT. D [Concomitant]
  7. NAPROXAN SODIUM [Concomitant]
  8. MICONAZOLE [Suspect]
     Active Substance: MICONAZOLE
     Indication: VAGINAL INFECTION
     Dosage: 100 MILIGRAM PER NIGHT?INSERT AT BEDTIME ONLY?USED APPLICATOR TO CREAM INSERT IN VAGINA.
     Route: 067
     Dates: start: 20140811, end: 20140818
  9. QVAR 80 [Concomitant]
  10. VYTORIN [Concomitant]
     Active Substance: EZETIMIBE\SIMVASTATIN
  11. ONEA DAY VITAMINS+MINERALS [Concomitant]
  12. OMEPRAZOLE. [Concomitant]
     Active Substance: OMEPRAZOLE
  13. ESCITALOPRAM [Concomitant]
     Active Substance: ESCITALOPRAM OXALATE
  14. ACYCLOVIR. [Concomitant]
     Active Substance: ACYCLOVIR
  15. LOSARTAN [Concomitant]
     Active Substance: LOSARTAN
  16. GLUCOSAMINE [Concomitant]
     Active Substance: GLUCOSAMINE
  17. LORATINE [Concomitant]

REACTIONS (1)
  - Vaginal haemorrhage [None]

NARRATIVE: CASE EVENT DATE: 20140811
